FAERS Safety Report 8316034 (Version 6)
Quarter: 2012Q4

REPORT INFORMATION
  Report Type: 
  Country: US (occurrence: US)
  Receive Date: 20111220
  Receipt Date: 20121001
  Transmission Date: 20130627
  Serious: Yes (Death, Life-Threatening, Hospitalization, Disabling, Other)
  Sender: FDA-Public Use
  Company Number: US-009507513-2011SP058154

PATIENT

DRUGS (2)
  1. NUVARING [Suspect]
     Indication: CONTRACEPTION
     Dosage: 50 MIC ESTROGEN 120 ETONOGESTREL/ONCE A MONTH
     Route: 067
     Dates: start: 20070801, end: 201111
  2. NUVARING [Suspect]
     Indication: CONTRACEPTION

REACTIONS (12)
  - Pulmonary embolism [Fatal]
  - Myocardial infarction [Unknown]
  - Cardiac arrest [Unknown]
  - Thrombosis [Fatal]
  - Hormone level abnormal [Unknown]
  - Deep vein thrombosis [Unknown]
  - Urinary tract infection [Unknown]
  - Trichomoniasis [Unknown]
  - Blood testosterone abnormal [Unknown]
  - Urinary tract infection [Unknown]
  - Pneumonia [Unknown]
  - Lower respiratory tract infection [Unknown]
